FAERS Safety Report 8368865-9 (Version None)
Quarter: 2012Q2

REPORT INFORMATION
  Report Type: 
  Country: None (occurrence: None)
  Receive Date: 20120516
  Receipt Date: 20120503
  Transmission Date: 20120825
  Serious: Yes (Death, Hospitalization)
  Sender: FDA-Public Use
  Company Number: FR-2012-1970

PATIENT
  Age: 73 Year
  Sex: Female

DRUGS (8)
  1. PLAVIX [Concomitant]
  2. ENDOXAN. MFR: NOT SPECIFIED [Suspect]
     Indication: BREAST CANCER METASTATIC
     Dates: start: 20110801
  3. CRESTOR [Concomitant]
  4. NAVELBINE [Suspect]
     Indication: BREAST CANCER METASTATIC
     Dosage: 45 MG, IV
     Dates: start: 20111001, end: 20111101
  5. IRBESARTAN [Concomitant]
  6. CLASTOBAN [Suspect]
     Indication: PRODUCT USED FOR UNKNOWN INDICATION
     Dates: start: 20081101
  7. NEXIUM [Concomitant]
  8. TAXOL [Suspect]
     Indication: BREAST CANCER METASTATIC
     Dates: start: 20110201

REACTIONS (14)
  - CONFUSIONAL STATE [None]
  - NEUROLOGICAL DECOMPENSATION [None]
  - LIVER DISORDER [None]
  - BLOOD ALKALINE PHOSPHATASE INCREASED [None]
  - ASPARTATE AMINOTRANSFERASE INCREASED [None]
  - DIALYSIS [None]
  - GAMMA-GLUTAMYLTRANSFERASE INCREASED [None]
  - RENAL FAILURE ACUTE [None]
  - AGITATION [None]
  - RENAL TUBULAR NECROSIS [None]
  - GENERAL PHYSICAL HEALTH DETERIORATION [None]
  - CONVULSION [None]
  - ALANINE AMINOTRANSFERASE INCREASED [None]
  - BLOOD LACTATE DEHYDROGENASE INCREASED [None]
